FAERS Safety Report 17779703 (Version 3)
Quarter: 2020Q2

REPORT INFORMATION
  Report Type: Report from Study
  Country: US (occurrence: US)
  Receive Date: 20200513
  Receipt Date: 20200605
  Transmission Date: 20200714
  Serious: Yes (Hospitalization)
  Sender: FDA-Public Use
  Company Number: US-ACTELION-A-NJ2020-204942

PATIENT
  Age: 10 Month
  Sex: Male

DRUGS (32)
  1. TYLENOL [Concomitant]
     Active Substance: ACETAMINOPHEN
     Indication: PAIN
  2. CHLOROTHIAZIDE. [Concomitant]
     Active Substance: CHLOROTHIAZIDE
     Dosage: 10 MG/KG, Q8HRS
     Route: 048
     Dates: start: 20200427, end: 20200501
  3. POTASSIUM CHLORIDE. [Concomitant]
     Active Substance: POTASSIUM CHLORIDE
     Dosage: 6 MEQ, BID
     Route: 048
     Dates: start: 20200501
  4. CEFTRIAXONE. [Concomitant]
     Active Substance: CEFTRIAXONE
     Dosage: 75 MG/KG, SINGLE
     Route: 042
     Dates: start: 20200425, end: 20200425
  5. TRACLEER [Suspect]
     Active Substance: BOSENTAN
     Indication: PULMONARY HYPERTENSION
     Dosage: 13.75 MG, BID
     Route: 048
     Dates: start: 20190912
  6. HEPARIN [Concomitant]
     Active Substance: HEPARIN SODIUM
     Dosage: 1 ML/HR, CONT INFUS
     Dates: start: 20200425, end: 20200427
  7. BUDESONIDE. [Concomitant]
     Active Substance: BUDESONIDE
     Dosage: 0.5 MG
     Dates: start: 20200425
  8. CHLOROTHIAZIDE. [Concomitant]
     Active Substance: CHLOROTHIAZIDE
     Dosage: 10 MG/KG, Q12HRS
     Route: 042
     Dates: start: 20200425, end: 20200427
  9. MIRALAX [Concomitant]
     Active Substance: POLYETHYLENE GLYCOL 3350
     Indication: CONSTIPATION
     Dosage: 8.5 G, QD, PRN
     Route: 048
     Dates: start: 20200428
  10. EPINEPHRINE. [Concomitant]
     Active Substance: EPINEPHRINE
     Dosage: UNK
     Dates: start: 20200425, end: 20200426
  11. MAGNESIUM SULFATE. [Concomitant]
     Active Substance: MAGNESIUM SULFATE
     Indication: ARRHYTHMIA
     Dosage: 30 MG/KG, Q6HRS,PRN
     Route: 042
     Dates: start: 20200425, end: 20200427
  12. FUROSEMIDE. [Concomitant]
     Active Substance: FUROSEMIDE
     Dosage: 12 MG, Q8HRS
     Route: 048
     Dates: start: 20200503
  13. SILDENAFIL. [Concomitant]
     Active Substance: SILDENAFIL
     Dosage: 7 MG, Q8HRS VIA GTUBE
     Dates: start: 20200425
  14. POLYVISOL [ASCORBIC ACID;CYANOCOBALAMIN;ERGOCALCIFEROL;NICOTINAMIDE;PY [Concomitant]
     Dosage: 0.5 ML
  15. SIMETHICONE (DIMETHICONE) [Concomitant]
     Active Substance: DIMETHICONE
     Dosage: 20 MG
  16. MOTRIN [Concomitant]
     Active Substance: IBUPROFEN
     Indication: PYREXIA
     Dosage: 10 MG/KG, Q6HRS, PRN
     Route: 048
     Dates: start: 20200503
  17. CALCIUM GLUCONATE. [Concomitant]
     Active Substance: CALCIUM GLUCONATE
     Dosage: UNK
     Dates: start: 20200425, end: 20200426
  18. FLONASE [Concomitant]
     Active Substance: FLUTICASONE PROPIONATE
     Dosage: 2 PUFF
     Dates: start: 20200429
  19. MOTRIN [Concomitant]
     Active Substance: IBUPROFEN
     Indication: PAIN
  20. TYLENOL [Concomitant]
     Active Substance: ACETAMINOPHEN
     Indication: PYREXIA
     Dosage: 15 MG/KG, Q4HRS, PRN
     Route: 048
     Dates: start: 20200425, end: 20200510
  21. OMEPRAZOLE. [Concomitant]
     Active Substance: OMEPRAZOLE
     Dosage: 12 MG, BID VIA GTUBE
     Dates: start: 20200425
  22. SPIRONOLACTONE. [Concomitant]
     Active Substance: SPIRONOLACTONE
     Dosage: 6.25 MG, BID VIA GTUBE
     Dates: start: 20200425
  23. ATROPINE. [Concomitant]
     Active Substance: ATROPINE
     Dosage: 0.02 MG/KG, PRN
     Route: 042
     Dates: start: 20200425, end: 20200427
  24. VANCOMYCIN [Concomitant]
     Active Substance: VANCOMYCIN
     Dosage: 110 MG, Q8HRS, IVPB
     Route: 042
     Dates: start: 20200425, end: 20200427
  25. GLYCERIN SUPPOSITORIES [Concomitant]
     Indication: CONSTIPATION
     Dosage: 0.5 SUPPOSITORY, Q24HR, PRN
     Route: 054
  26. ALBUTEROL HFA [Concomitant]
     Active Substance: ALBUTEROL SULFATE
     Dosage: 4 PUFF, Q4HRS
     Dates: start: 20200429, end: 20200509
  27. SODIUM CHLORIDE. [Concomitant]
     Active Substance: SODIUM CHLORIDE
     Dosage: 5 MEQ, BID GT FEEDS
     Dates: start: 20200425
  28. CEFEPIME [Concomitant]
     Active Substance: CEFEPIME HYDROCHLORIDE
     Dosage: 380 MG Q8HRS
     Route: 042
     Dates: start: 20200427, end: 20200502
  29. EMLA [Concomitant]
     Active Substance: LIDOCAINE\PRILOCAINE
     Dosage: UNK
     Route: 061
     Dates: start: 20200430, end: 20200430
  30. ORAPRED [Concomitant]
     Active Substance: PREDNISOLONE SODIUM PHOSPHATE
     Dosage: 1 MG/KG, BID, PRN
     Route: 048
     Dates: start: 20200430
  31. SODIUM BICARBONATE. [Concomitant]
     Active Substance: SODIUM BICARBONATE
     Dosage: UNK
     Dates: start: 20200425, end: 20200427
  32. MYCOSTATIN [Concomitant]
     Active Substance: NYSTATIN
     Dosage: 200000 U

REACTIONS (3)
  - Respiratory distress [Not Recovered/Not Resolved]
  - Pyrexia [Recovered/Resolved]
  - Pneumonia [Recovered/Resolved]

NARRATIVE: CASE EVENT DATE: 20200425
